FAERS Safety Report 4820897-0 (Version None)
Quarter: 2005Q4

REPORT INFORMATION
  Report Type: 
  Country: None (occurrence: None)
  Receive Date: 20051104
  Receipt Date: 20050912
  Transmission Date: 20060501
  Serious: Yes (Other)
  Sender: FDA-Public Use
  Company Number: DE-ABBOTT-05P-062-0310810-00

PATIENT
  Sex: Female

DRUGS (1)
  1. ERGENYL CHRONO TABLETS [Suspect]
     Indication: EPILEPSY
     Route: 050
     Dates: start: 20050126

REACTIONS (1)
  - ABORTION SPONTANEOUS [None]
